FAERS Safety Report 19779199 (Version 2)
Quarter: 2021Q3

REPORT INFORMATION
  Report Type: Spontaneous
  Country: BR (occurrence: BR)
  Receive Date: 20210902
  Receipt Date: 20210913
  Transmission Date: 20211014
  Serious: Yes (Hospitalization)
  Sender: FDA-Public Use
  Company Number: BR-CELGENEUS-BRA-20210808393

PATIENT
  Sex: Male
  Weight: 58 kg

DRUGS (1)
  1. VIDAZA [Suspect]
     Active Substance: AZACITIDINE
     Indication: MYELODYSPLASTIC SYNDROME
     Dosage: 160 MILLIGRAM
     Route: 065
     Dates: start: 20170626, end: 20210707

REACTIONS (1)
  - Oesophageal fistula [Recovered/Resolved]

NARRATIVE: CASE EVENT DATE: 2021
